FAERS Safety Report 12988249 (Version 2)
Quarter: 2016Q4

REPORT INFORMATION
  Report Type: Spontaneous
  Country: BR (occurrence: BR)
  Receive Date: 20161130
  Receipt Date: 20161215
  Transmission Date: 20170207
  Serious: Yes (Other)
  Sender: FDA-Public Use
  Company Number: PHHY2016BR160770

PATIENT
  Age: 64 Year
  Sex: Male

DRUGS (1)
  1. ROSUVASTATIN CALCIUM SANDOZ [Suspect]
     Active Substance: ROSUVASTATIN CALCIUM
     Indication: BLOOD CHOLESTEROL
     Dosage: 10 MG, QD
     Route: 048
     Dates: start: 20161120

REACTIONS (3)
  - Myalgia [Recovered/Resolved]
  - Pain in extremity [Recovered/Resolved]
  - Gait disturbance [Recovered/Resolved]

NARRATIVE: CASE EVENT DATE: 20161121
